FAERS Safety Report 19779180 (Version 1)
Quarter: 2021Q3

REPORT INFORMATION
  Report Type: Spontaneous
  Country: US (occurrence: US)
  Receive Date: 20210831
  Receipt Date: 20210831
  Transmission Date: 20211014
  Serious: Yes (Other)
  Sender: FDA-Public Use
  Company Number: None

PATIENT
  Sex: Male

DRUGS (3)
  1. ESBRIET [Suspect]
     Active Substance: PIRFENIDONE
     Indication: IDIOPATHIC PULMONARY FIBROSIS
     Route: 048
     Dates: start: 20200619
  2. UROGESIC? TAB BLUE [Concomitant]
  3. PHENAZOPYRID TAB 100MG [Concomitant]

REACTIONS (2)
  - Therapy interrupted [None]
  - Bladder cancer [None]
